FAERS Safety Report 5990701-6 (Version None)
Quarter: 2008Q4

REPORT INFORMATION
  Report Type: 
  Country: None (occurrence: None)
  Receive Date: 20081211
  Receipt Date: 20081202
  Transmission Date: 20090506
  Serious: Yes (Other)
  Sender: FDA-Public Use
  Company Number: PHHY2008DE30709

PATIENT
  Age: 90 Year
  Sex: Female

DRUGS (6)
  1. DIOVAN [Suspect]
     Indication: HYPERTENSION
     Dosage: 1 DF, BID
  2. METOPROLOL TARTRATE [Concomitant]
     Dosage: 1 DF, QD
     Dates: start: 20080901, end: 20081101
  3. METOPROLOL TARTRATE [Concomitant]
     Dosage: 0.5 DF, QD
     Dates: start: 20081101
  4. CARMEN [Concomitant]
     Dosage: 1 DF, QD
     Dates: start: 20080901
  5. ACETYLSALICYLIC ACID SRT [Concomitant]
     Dosage: 1 DF, QD
     Dates: start: 20080901
  6. OXAZEPAM [Concomitant]
     Dosage: 1 DF, QD
     Dates: start: 20080901

REACTIONS (5)
  - ABASIA [None]
  - ASTHENIA [None]
  - BLOOD PRESSURE INADEQUATELY CONTROLLED [None]
  - DIZZINESS [None]
  - DYSSTASIA [None]
